FAERS Safety Report 6615337-5 (Version None)
Quarter: 2010Q1

REPORT INFORMATION
  Report Type: 
  Country: None (occurrence: None)
  Receive Date: 20100305
  Receipt Date: 20091125
  Transmission Date: 20100710
  Serious: No
  Sender: FDA-Public Use
  Company Number: A0796268A

PATIENT
  Age: 64 Year
  Sex: Female
  Weight: 94.5 kg

DRUGS (10)
  1. REQUIP [Suspect]
     Indication: RESTLESS LEGS SYNDROME
     Dosage: 1MG AT NIGHT
     Route: 048
     Dates: start: 20061001, end: 20090413
  2. ROPINIROLE HYDROCHLORIDE [Suspect]
     Indication: DRUG USE FOR UNKNOWN INDICATION
     Route: 048
     Dates: start: 20080602, end: 20090209
  3. DARVOCET [Concomitant]
  4. ASPIRIN [Concomitant]
  5. ATENOLOL [Concomitant]
  6. CYMBALTA [Concomitant]
  7. UNIRETIC [Concomitant]
  8. LEXAPRO [Concomitant]
  9. CRESTOR [Concomitant]
  10. HYZAAR [Concomitant]

REACTIONS (1)
  - GAMBLING [None]
